FAERS Safety Report 6758717-X (Version None)
Quarter: 2010Q2

REPORT INFORMATION
  Report Type: 
  Country: None (occurrence: None)
  Receive Date: 20100602
  Receipt Date: 20100521
  Transmission Date: 20101027
  Serious: Yes (Hospitalization)
  Sender: FDA-Public Use
  Company Number: DSA_42862_2010

PATIENT
  Sex: Male
  Weight: 72.1219 kg

DRUGS (12)
  1. XENAZINE [Suspect]
     Indication: TARDIVE DYSKINESIA
     Dosage: 12.5 MG EVERY MORNING ORAL, 12.5 MG BID ORAL
     Route: 048
     Dates: start: 20100127, end: 20100209
  2. XENAZINE [Suspect]
     Indication: TARDIVE DYSKINESIA
     Dosage: 12.5 MG EVERY MORNING ORAL, 12.5 MG BID ORAL
     Route: 048
     Dates: start: 20100210
  3. CLONAZEPAM [Concomitant]
  4. LEXAPRO [Concomitant]
  5. HYDROCHLOROTHIAZIDE [Concomitant]
  6. TERAZOSIN HCL [Concomitant]
  7. METOPROLOL TARTRATE [Concomitant]
  8. OMEPRAZOLE [Concomitant]
  9. BUPROPION HCL [Concomitant]
  10. BENADRYL [Concomitant]
  11. SEROQUEL [Concomitant]
  12. VITAMIN E [Concomitant]

REACTIONS (2)
  - CHEST PAIN [None]
  - DYSPNOEA [None]
